FAERS Safety Report 15493794 (Version 1)
Quarter: 2018Q4

REPORT INFORMATION
  Report Type: Spontaneous
  Country: US (occurrence: US)
  Receive Date: 20181004
  Receipt Date: 20181004
  Transmission Date: 20190205
  Serious: Yes (Hospitalization)
  Sender: FDA-Public Use
  Company Number: None

PATIENT
  Age: 73 Year
  Sex: Female
  Weight: 84.4 kg

DRUGS (1)
  1. GEMCITABINE HYDROCHLORIDE. [Suspect]
     Active Substance: GEMCITABINE HYDROCHLORIDE
     Dates: end: 20180816

REACTIONS (5)
  - Upper gastrointestinal haemorrhage [None]
  - Failure to thrive [None]
  - Movement disorder [None]
  - Staphylococcal infection [None]
  - Catheter site infection [None]

NARRATIVE: CASE EVENT DATE: 20180927
